FAERS Safety Report 24990275 (Version 1)
Quarter: 2025Q1

REPORT INFORMATION
  Report Type: Spontaneous
  Country: US (occurrence: None)
  Receive Date: 20250219
  Receipt Date: 20250219
  Transmission Date: 20250409
  Serious: Yes (Other)
  Sender: FDA-CTU
  Company Number: None

PATIENT
  Age: 59 Year
  Sex: Female
  Weight: 85.05 kg

DRUGS (7)
  1. JARDIANCE [Suspect]
     Active Substance: EMPAGLIFLOZIN
     Indication: Diabetes mellitus
     Dosage: OTHER QUANTITY : 1 TABLET(S);?FREQUENCY : DAILY;?
     Route: 048
     Dates: start: 20240101, end: 20241031
  2. ROSUVASTATIN [Concomitant]
     Active Substance: ROSUVASTATIN
  3. VALSARTAN [Concomitant]
     Active Substance: VALSARTAN
  4. GABAPENTIN [Concomitant]
     Active Substance: GABAPENTIN
  5. CARVEDILOL [Concomitant]
     Active Substance: CARVEDILOL
  6. ASPIRIN [Concomitant]
     Active Substance: ASPIRIN
  7. women multi-vit all once a day [Concomitant]

REACTIONS (4)
  - Fungal infection [None]
  - Rash [None]
  - Skin atrophy [None]
  - Perineal injury [None]

NARRATIVE: CASE EVENT DATE: 20240620
